FAERS Safety Report 5179222-0 (Version None)
Quarter: 2006Q4

REPORT INFORMATION
  Report Type: 
  Country: None (occurrence: None)
  Receive Date: 20061211
  Receipt Date: 20061130
  Transmission Date: 20070319
  Serious: Yes (Hospitalization)
  Sender: FDA-Public Use
  Company Number: MEDI-0005052

PATIENT
  Age: 53 Year
  Sex: Male
  Weight: 112.9457 kg

DRUGS (3)
  1. ETHYOL [Suspect]
     Indication: TONGUE NEOPLASM MALIGNANT STAGE UNSPECIFIED
     Dosage: 500 MG, 1 IN 1 D, SUBCUTANEOUS
     Route: 058
     Dates: start: 20060713, end: 20060720
  2. RADIATION THERAPY [Concomitant]
  3. CISPLATIN [Concomitant]

REACTIONS (8)
  - HEADACHE [None]
  - ORAL MUCOSA EROSION [None]
  - PAIN [None]
  - PYREXIA [None]
  - RASH GENERALISED [None]
  - RASH PAPULAR [None]
  - SKIN BURNING SENSATION [None]
  - SKIN LESION [None]
